FAERS Safety Report 23150327 (Version 1)
Quarter: 2023Q4

REPORT INFORMATION
  Report Type: Spontaneous
  Country: GB (occurrence: GB)
  Receive Date: 20231106
  Receipt Date: 20231106
  Transmission Date: 20240109
  Serious: Yes (Other)
  Sender: FDA-Public Use
  Company Number: GB-ROCHE-2834329

PATIENT
  Age: 47 Year
  Sex: Female
  Weight: 64 kg

DRUGS (4)
  1. TRASTUZUMAB [Suspect]
     Active Substance: TRASTUZUMAB
     Indication: Product used for unknown indication
     Dosage: UNK
     Route: 042
  2. PERTUZUMAB [Suspect]
     Active Substance: PERTUZUMAB
     Indication: Product used for unknown indication
     Dosage: UNK
     Route: 042
  3. PHESGO [Suspect]
     Active Substance: HYALURONIDASE-ZZXF\PERTUZUMAB\TRASTUZUMAB
     Indication: Breast cancer
     Dosage: UNK
     Route: 058
  4. PREGNENOLONE [Concomitant]
     Active Substance: PREGNENOLONE
     Dosage: UNK
     Route: 065

REACTIONS (4)
  - Cellulite [Unknown]
  - Hypoaesthesia [Recovered/Resolved]
  - Joint swelling [Recovered/Resolved]
  - Weight increased [Unknown]

NARRATIVE: CASE EVENT DATE: 20210413
